FAERS Safety Report 4639941-9 (Version None)
Quarter: 2005Q2

REPORT INFORMATION
  Report Type: 
  Country: None (occurrence: None)
  Receive Date: 20050415
  Receipt Date: 20050330
  Transmission Date: 20051028
  Serious: Yes (Other)
  Sender: FDA-Public Use
  Company Number: GBS050417041

PATIENT
  Age: 58 Year
  Sex: Female

DRUGS (1)
  1. YENTREVE (DULOXETINE HYDROCHLORIDE) [Suspect]
     Indication: STRESS INCONTINENCE
     Dosage: 40 MG DAY

REACTIONS (4)
  - ABDOMINAL PAIN UPPER [None]
  - HAEMORRHAGE [None]
  - MUSCLE SPASMS [None]
  - POLLAKIURIA [None]
